FAERS Safety Report 17860846 (Version 1)
Quarter: 2020Q2

REPORT INFORMATION
  Report Type: Spontaneous
  Country: GB (occurrence: GB)
  Receive Date: 20200604
  Receipt Date: 20200604
  Transmission Date: 20200714
  Serious: Yes (Other)
  Sender: FDA-Public Use
  Company Number: GB-SA-2020SA137261

PATIENT
  Age: 43 Year
  Sex: Male

DRUGS (2)
  1. CLEXANE [Suspect]
     Active Substance: ENOXAPARIN SODIUM
     Indication: ANTICOAGULATION DRUG LEVEL BELOW THERAPEUTIC
     Dosage: 160 MG, QD
  2. WARFARIN [Concomitant]
     Active Substance: WARFARIN
     Indication: CEREBRAL INFARCTION
     Dosage: 13 MG, QD

REACTIONS (3)
  - Haemorrhage [Unknown]
  - General physical health deterioration [Unknown]
  - Product prescribing error [Unknown]

NARRATIVE: CASE EVENT DATE: 20190805
